FAERS Safety Report 25920630 (Version 1)
Quarter: 2025Q4

REPORT INFORMATION
  Report Type: Spontaneous
  Country: EU (occurrence: EU)
  Receive Date: 20251014
  Receipt Date: 20251014
  Transmission Date: 20260117
  Serious: Yes (Other)
  Sender: PFIZER
  Company Number: EU-PFIZER INC-PV202500120682

PATIENT
  Sex: Female

DRUGS (2)
  1. LORLATINIB [Suspect]
     Active Substance: LORLATINIB
     Indication: Non-small cell lung cancer metastatic
     Dosage: 100 MG, DAILY
  2. LORLATINIB [Suspect]
     Active Substance: LORLATINIB
     Indication: ALK gene rearrangement positive

REACTIONS (2)
  - Hallucination [Recovered/Resolved]
  - Speech disorder [Recovered/Resolved]
